FAERS Safety Report 6321786-5 (Version None)
Quarter: 2009Q3

REPORT INFORMATION
  Report Type: 
  Country: None (occurrence: None)
  Receive Date: 20090824
  Receipt Date: 20090811
  Transmission Date: 20100115
  Serious: No
  Sender: FDA-Public Use
  Company Number: BR-ROCHE-650739

PATIENT
  Sex: Female
  Weight: 46.8 kg

DRUGS (5)
  1. TAMIFLU [Suspect]
     Dosage: 2 CAPSULE DILUTED IN 10 ML OF WATER
     Route: 048
     Dates: start: 20090807
  2. LUFTAL [Concomitant]
     Indication: CONSTIPATION
     Route: 048
  3. TAMARINE [Concomitant]
     Indication: CONSTIPATION
     Dosage: ONE SPOON DAILY
     Route: 048
  4. PIRACETAM [Concomitant]
     Route: 048
  5. ZINNAT [Concomitant]
     Indication: ANTIBIOTIC THERAPY
     Route: 048

REACTIONS (2)
  - DRUG ADMINISTRATION ERROR [None]
  - NO ADVERSE EVENT [None]
